FAERS Safety Report 7187329-1 (Version None)
Quarter: 2010Q4

REPORT INFORMATION
  Report Type: 
  Country: None (occurrence: None)
  Receive Date: 20101222
  Receipt Date: 20101208
  Transmission Date: 20110411
  Serious: Yes (Other)
  Sender: FDA-Public Use
  Company Number: US-MERCK-1012USA03372

PATIENT

DRUGS (1)
  1. DECADRON [Suspect]
     Indication: ATRIOVENTRICULAR BLOCK
     Route: 064

REACTIONS (1)
  - FOETAL DISORDER [None]
